FAERS Safety Report 5585657-4 (Version None)
Quarter: 2008Q1

REPORT INFORMATION
  Report Type: 
  Country: None (occurrence: None)
  Receive Date: 20080109
  Receipt Date: 20071207
  Transmission Date: 20080703
  Serious: No
  Sender: FDA-Public Use
  Company Number: US-BAYER-200712496BCC

PATIENT
  Sex: Female
  Weight: 91 kg

DRUGS (2)
  1. ALEVE [Suspect]
     Indication: SPONDYLITIS
     Route: 048
  2. ZOLOFT [Concomitant]

REACTIONS (3)
  - DEPERSONALISATION [None]
  - DIZZINESS [None]
  - PRESYNCOPE [None]
